FAERS Safety Report 8163974-1 (Version None)
Quarter: 2012Q1

REPORT INFORMATION
  Report Type: 
  Country: None (occurrence: None)
  Receive Date: 20120224
  Receipt Date: 20120215
  Transmission Date: 20120608
  Serious: Yes (Death)
  Sender: FDA-Public Use
  Company Number: US-ACTELION-A-NJ2011-56605

PATIENT

DRUGS (4)
  1. TRACLEER [Suspect]
     Indication: PULMONARY ARTERIAL HYPERTENSION
     Dosage: UNK
     Route: 048
     Dates: start: 20111007
  2. AMIODARONE HCL [Concomitant]
  3. LASIX [Concomitant]
  4. REVATIO [Concomitant]

REACTIONS (4)
  - WEIGHT INCREASED [None]
  - ABDOMINAL DISTENSION [None]
  - DEATH [None]
  - LOCALISED OEDEMA [None]
